FAERS Safety Report 4478826-8 (Version None)
Quarter: 2004Q3

REPORT INFORMATION
  Report Type: 
  Country: None (occurrence: None)
  Receive Date: 20040923
  Receipt Date: 20040720
  Transmission Date: 20050211
  Serious: No
  Sender: FDA-Public Use
  Company Number: USA040773188

PATIENT
  Age: 73 Year
  Sex: Female

DRUGS (7)
  1. FORTEO [Suspect]
     Indication: OSTEOPOROSIS
     Dates: start: 20040521, end: 20040720
  2. HYDROCODONE [Concomitant]
  3. VIOXX [Concomitant]
  4. VITAMIN [Concomitant]
  5. ASPIRIN [Concomitant]
  6. OSCAL (CALCIUM CARBONATE) [Concomitant]
  7. ZOLOFT [Concomitant]

REACTIONS (2)
  - BACK PAIN [None]
  - CHEST PAIN [None]
